FAERS Safety Report 11991637 (Version 1)
Quarter: 2016Q1

REPORT INFORMATION
  Report Type: Spontaneous
  Country: US (occurrence: US)
  Receive Date: 20160203
  Receipt Date: 20160203
  Transmission Date: 20160526
  Serious: No
  Sender: FDA-Public Use
  Company Number: US-JNJFOC-20151221779

PATIENT
  Age: 57 Year
  Sex: Male
  Weight: 78.47 kg

DRUGS (4)
  1. SUDAFED CONGESTION MS [Suspect]
     Active Substance: PSEUDOEPHEDRINE HYDROCHLORIDE
     Indication: UPPER RESPIRATORY TRACT INFECTION
     Dosage: 2 TABLETS
     Route: 048
     Dates: start: 20151221
  2. SYNTHROID [Concomitant]
     Active Substance: LEVOTHYROXINE SODIUM
     Indication: THYROID DISORDER
     Route: 065
  3. SINGULAIR [Concomitant]
     Active Substance: MONTELUKAST SODIUM
     Indication: PRODUCT USED FOR UNKNOWN INDICATION
     Route: 065
  4. SIMVASTATIN. [Concomitant]
     Active Substance: SIMVASTATIN
     Indication: BLOOD CHOLESTEROL INCREASED
     Route: 065

REACTIONS (5)
  - Drug ineffective for unapproved indication [Unknown]
  - Product packaging issue [Unknown]
  - Product use issue [Unknown]
  - Off label use [Unknown]
  - Contraindication to medical treatment [Unknown]
